FAERS Safety Report 5067547-9 (Version None)
Quarter: 2006Q3

REPORT INFORMATION
  Report Type: 
  Country: None (occurrence: None)
  Receive Date: 20060719
  Receipt Date: 20051228
  Transmission Date: 20061208
  Serious: Yes (Hospitalization)
  Sender: FDA-Public Use
  Company Number: 1936

PATIENT
  Sex: Male

DRUGS (15)
  1. ATENOLOL [Suspect]
     Indication: HYPERTENSION
     Dosage: 25MG, PO
     Route: 048
     Dates: start: 20020402
  2. LISINOPRIL [Concomitant]
  3. VALPROATE SODIUM (250 MG PER DAY) [Concomitant]
  4. SILDENAFIL (100 MG AS NECESSARY) [Concomitant]
  5. ATENOLOL (25 MG PER DAY) [Concomitant]
  6. AMIODARONE (200 MG) [Concomitant]
  7. SIMVASTATIN (ZOCOR, 20 MG) [Concomitant]
  8. LEVOTHYROXYNE (100 MCG) [Concomitant]
  9. POTASSIUM CHLORIDE [Concomitant]
  10. EZETIMIBE (ZETIA, 10 MG) [Concomitant]
  11. LOSARTAN (COZAAR, 50 MG) [Concomitant]
  12. DIVALPROEX SODIUM [Concomitant]
  13. MAGNESIUM [Concomitant]
  14. IRON [Concomitant]
  15. VITAMIN B COMPLEX CAP [Concomitant]

REACTIONS (1)
  - HYPOTENSION [None]
